FAERS Safety Report 11940089 (Version 1)
Quarter: 2016Q1

REPORT INFORMATION
  Report Type: Spontaneous
  Country: US (occurrence: US)
  Receive Date: 20160122
  Receipt Date: 20160122
  Transmission Date: 20160526
  Serious: Yes (Death, Hospitalization)
  Sender: FDA-Public Use
  Company Number: US-BAUSCH-BL-2016-001616

PATIENT
  Age: 54 Year
  Sex: Female

DRUGS (4)
  1. LACTULOSE. [Concomitant]
     Active Substance: LACTULOSE
     Indication: AMMONIA INCREASED
     Route: 048
     Dates: start: 201511
  2. FOLIC ACID. [Concomitant]
     Active Substance: FOLIC ACID
     Indication: PRODUCT USED FOR UNKNOWN INDICATION
     Route: 048
     Dates: start: 20151101
  3. SPIRONOLACTONE. [Concomitant]
     Active Substance: SPIRONOLACTONE
     Indication: PRODUCT USED FOR UNKNOWN INDICATION
     Route: 048
     Dates: start: 20151101
  4. XIFAXAN [Suspect]
     Active Substance: RIFAXIMIN
     Indication: AMMONIA ABNORMAL
     Route: 048
     Dates: start: 20151101

REACTIONS (4)
  - Renal failure [Fatal]
  - Respiratory failure [Fatal]
  - Gastrointestinal infection [Fatal]
  - Hepatic failure [Fatal]

NARRATIVE: CASE EVENT DATE: 20151210
